FAERS Safety Report 9819800 (Version 1)
Quarter: 2014Q1

REPORT INFORMATION
  Report Type: Spontaneous
  Country: US (occurrence: US)
  Receive Date: 20140116
  Receipt Date: 20140116
  Transmission Date: 20141002
  Serious: Yes (Other)
  Sender: FDA-Public Use
  Company Number: US-BRISTOL-MYERS SQUIBB COMPANY-19994375

PATIENT
  Sex: 0

DRUGS (1)
  1. ABILIFY TABS 5 MG [Suspect]

REACTIONS (4)
  - Suicidal ideation [Unknown]
  - Hallucination [Unknown]
  - Dizziness [Unknown]
  - Insomnia [Unknown]
